FAERS Safety Report 21987204 (Version 1)
Quarter: 2023Q1

REPORT INFORMATION
  Report Type: Spontaneous
  Country: RU (occurrence: RU)
  Receive Date: 20230213
  Receipt Date: 20230213
  Transmission Date: 20230418
  Serious: Yes (Hospitalization)
  Sender: FDA-Public Use
  Company Number: RU-drreddys-LIT/RUS/23/0160551

PATIENT
  Age: 65 Year
  Sex: Female
  Weight: 87 kg

DRUGS (6)
  1. MELOXICAM [Suspect]
     Active Substance: MELOXICAM
     Indication: Pain
     Dosage: 7.5 MG/DAY
  2. MELOXICAM [Suspect]
     Active Substance: MELOXICAM
     Dosage: FOLLOWED BY 7.5 MG/DAY FOR 10 DAYS.
     Route: 030
  3. NIMESULIDE [Suspect]
     Active Substance: NIMESULIDE
     Indication: Pain
  4. DICLOFENAC [Suspect]
     Active Substance: DICLOFENAC
     Indication: Pain
  5. BETAMETHASONE [Concomitant]
     Active Substance: BETAMETHASONE
     Indication: Product used for unknown indication
     Route: 014
  6. HYALURONIC ACID [Concomitant]
     Active Substance: HYALURONIC ACID
     Indication: Product used for unknown indication

REACTIONS (9)
  - Disease risk factor [Recovering/Resolving]
  - Obesity [Recovering/Resolving]
  - Essential hypertension [Recovering/Resolving]
  - Blood pressure increased [Recovering/Resolving]
  - Osteoarthritis [Recovering/Resolving]
  - Osteoarthritis [Recovering/Resolving]
  - Spinal osteoarthritis [Recovering/Resolving]
  - Abdominal pain upper [Unknown]
  - Drug ineffective [Unknown]
